FAERS Safety Report 5826563-7 (Version None)
Quarter: 2008Q3

REPORT INFORMATION
  Report Type: 
  Country: None (occurrence: None)
  Receive Date: 20080729
  Receipt Date: 20080721
  Transmission Date: 20090109
  Serious: Yes (Other)
  Sender: FDA-Public Use
  Company Number: US-ELI_LILLY_AND_COMPANY-US200805002262

PATIENT
  Sex: Male

DRUGS (8)
  1. BYETTA [Suspect]
     Indication: TYPE 2 DIABETES MELLITUS
     Dosage: 10 UG, 2/D
     Route: 058
     Dates: start: 20080212, end: 20080101
  2. BYETTA [Suspect]
     Dosage: 5 UG, UNKNOWN
     Dates: start: 20080101, end: 20080317
  3. SIMVASTATIN [Concomitant]
     Indication: BLOOD CHOLESTEROL
     Dosage: 40 MG, DAILY (1/D)
     Route: 048
     Dates: start: 20080218
  4. NORVASC [Concomitant]
     Indication: BLOOD PRESSURE
     Dosage: 10 MG, DAILY (1/D)
     Dates: start: 20070709
  5. TERAZOSIN HCL [Concomitant]
     Indication: PROSTATOMEGALY
     Dosage: 10 MG, DAILY (1/D)
     Dates: start: 20071120
  6. METOPROLOL TARTRATE [Concomitant]
     Indication: BLOOD PRESSURE
     Dosage: 100 MG, DAILY (1/D)
     Dates: start: 20071107
  7. GLIPIZIDE [Concomitant]
     Indication: BLOOD GLUCOSE INCREASED
     Dosage: 20 MG, DAILY (1/D)
     Dates: start: 20071112
  8. PLAVIX [Concomitant]
     Indication: ANTICOAGULANT THERAPY
     Dosage: 75 MG, DAILY (1/D)
     Route: 048
     Dates: start: 20071112

REACTIONS (3)
  - CONVULSION [None]
  - INCORRECT DOSE ADMINISTERED [None]
  - TRANSIENT ISCHAEMIC ATTACK [None]
